FAERS Safety Report 23721027 (Version 2)
Quarter: 2024Q2

REPORT INFORMATION
  Report Type: Spontaneous
  Country: US (occurrence: US)
  Receive Date: 20240409
  Receipt Date: 20240507
  Transmission Date: 20240715
  Serious: No
  Sender: FDA-Public Use
  Company Number: US-JNJFOC-20240420903

PATIENT

DRUGS (1)
  1. INFLIXIMAB\RECOMBINANT INTERLEUKIN-2 HUMAN [Suspect]
     Active Substance: ALDESLEUKIN\INFLIXIMAB
     Indication: Product used for unknown indication
     Route: 041

REACTIONS (1)
  - Drug ineffective [Unknown]
